FAERS Safety Report 9316533 (Version 3)
Quarter: 2013Q2

REPORT INFORMATION
  Report Type: Spontaneous
  Country: JP (occurrence: None)
  Receive Date: 20130522
  Receipt Date: 20130610
  Transmission Date: 20140414
  Serious: Yes (Death, Hospitalization)
  Sender: FDA-Public Use
  Company Number: TPA2013A02538

PATIENT
  Sex: 0

DRUGS (2)
  1. FEBURIC [Suspect]
     Indication: HYPERURICAEMIA
     Dosage: 20 MG (20 MG, 1 IN 1 D), ORAL
     Route: 048
     Dates: start: 201210
  2. IMMUNOSUPPRESANT (IMMUNOSUPPRESANTS) [Concomitant]

REACTIONS (1)
  - Pancytopenia [None]
